FAERS Safety Report 9379586 (Version 3)
Quarter: 2013Q3

REPORT INFORMATION
  Report Type: Spontaneous
  Country: US (occurrence: US)
  Receive Date: 20130702
  Receipt Date: 20130819
  Transmission Date: 20140515
  Serious: Yes (Death)
  Sender: FDA-Public Use
  Company Number: US-SANOFI-AVENTIS-2013SA065471

PATIENT
  Age: 47 Year
  Sex: Male
  Weight: 64.41 kg

DRUGS (3)
  1. ZOLPIDEM TARTRATE [Suspect]
     Indication: INSOMNIA
     Route: 048
     Dates: start: 20121207, end: 20121220
  2. NEXIUM [Concomitant]
     Indication: GASTROOESOPHAGEAL REFLUX DISEASE
     Route: 065
  3. ATIVAN [Concomitant]
     Indication: INSOMNIA
     Route: 065
     Dates: start: 20121231

REACTIONS (2)
  - Completed suicide [Fatal]
  - Drug ineffective [Unknown]
